FAERS Safety Report 10662144 (Version 1)
Quarter: 2014Q4

REPORT INFORMATION
  Report Type: Spontaneous
  Country: US (occurrence: US)
  Receive Date: 20141218
  Receipt Date: 20141218
  Transmission Date: 20150529
  Serious: No
  Sender: FDA-Public Use
  Company Number: US-BAYER-2014-186625

PATIENT
  Age: 16 Year
  Sex: Female
  Weight: 63.49 kg

DRUGS (3)
  1. ALEVE [Suspect]
     Active Substance: NAPROXEN SODIUM
     Indication: HEADACHE
     Dosage: UNK DF, UNK
     Route: 048
  2. ZITHROMAX [Concomitant]
     Active Substance: AZITHROMYCIN DIHYDRATE
     Indication: STREPTOCOCCAL INFECTION
  3. ALEVE [Suspect]
     Active Substance: NAPROXEN SODIUM
     Indication: HEADACHE
     Dosage: 5 DF, ONCE
     Route: 048
     Dates: start: 20141216, end: 20141216

REACTIONS (4)
  - Extra dose administered [Unknown]
  - Abdominal pain upper [Unknown]
  - Drug administered to patient of inappropriate age [None]
  - Expired product administered [Unknown]

NARRATIVE: CASE EVENT DATE: 20141216
